FAERS Safety Report 8195692-8 (Version None)
Quarter: 2012Q1

REPORT INFORMATION
  Report Type: 
  Country: None (occurrence: None)
  Receive Date: 20120308
  Receipt Date: 20120304
  Transmission Date: 20120608
  Serious: Yes (Other)
  Sender: FDA-Public Use
  Company Number: IL-PFIZER INC-2011315557

PATIENT
  Age: 40 Year
  Sex: Female

DRUGS (4)
  1. REVATIO [Suspect]
     Indication: HYPERTENSION
     Dosage: 20 MG, 3X/DAY
     Route: 048
     Dates: start: 20080101
  2. AMBRISENTAN [Concomitant]
     Dosage: 10 MG, 1X/DAY
     Dates: start: 20050101
  3. FEMULEN [Concomitant]
     Indication: CONTRACEPTION
     Dosage: UNK
     Dates: start: 20100101
  4. VENTAVIS [Concomitant]
     Dosage: UNK

REACTIONS (3)
  - BLOOD IRON DECREASED [None]
  - HAEMOGLOBIN DECREASED [None]
  - SERUM FERRITIN DECREASED [None]
